FAERS Safety Report 7991357-3 (Version None)
Quarter: 2011Q4

REPORT INFORMATION
  Report Type: 
  Country: None (occurrence: None)
  Receive Date: 20111219
  Receipt Date: 20111212
  Transmission Date: 20120403
  Serious: Yes (Life-Threatening, Hospitalization)
  Sender: FDA-Public Use
  Company Number: US-UCBSA-009557

PATIENT
  Age: 62 Year
  Sex: Male
  Weight: 81 kg

DRUGS (16)
  1. FOLIC ACID [Concomitant]
     Route: 048
  2. ENTOCORT EC [Concomitant]
  3. ACETAMINOPHEN [Concomitant]
  4. B-12 INJECTIONS/CYANOCOBALAMIN [Concomitant]
     Dosage: 1000MCG/ML INJETCION 1ML IM EVERY 2 WEEKS X 2 DOSES, THEN 1ML MONTHLY IM. DISPENSE QS 30 DAYS SUPPLY
     Route: 030
  5. SULFASALAZINE [Concomitant]
     Dates: start: 20090101, end: 20100518
  6. POTASSIUM CHLORIDE [Concomitant]
  7. BUDESONIDE [Concomitant]
     Dates: start: 20091223
  8. CIMZIA [Suspect]
     Indication: CROHN'S DISEASE
     Route: 058
     Dates: start: 20100114, end: 20100101
  9. CALCIUM [Concomitant]
  10. CENTRUM MULTIVITAMIN [Concomitant]
     Route: 048
  11. BENICAR [Concomitant]
     Dosage: 20 MG DAILY
     Route: 048
  12. ACETAMINOPHEN [Concomitant]
     Route: 048
  13. METHOTREXATE [Concomitant]
     Indication: RHEUMATOID ARTHRITIS
     Dates: start: 20091202
  14. PREDNISONE TAB [Concomitant]
  15. HYDROCORTISONE ACETATE SUPPOSITORY [Concomitant]
  16. IRON [Concomitant]

REACTIONS (7)
  - WHITE BLOOD CELLS STOOL POSITIVE [None]
  - DEEP VEIN THROMBOSIS [None]
  - ACUTE RESPIRATORY FAILURE [None]
  - HAEMORRHAGIC ANAEMIA [None]
  - RENAL FAILURE ACUTE [None]
  - PNEUMONIA [None]
  - PULMONARY EMBOLISM [None]
